FAERS Safety Report 14609728 (Version 9)
Quarter: 2018Q3

REPORT INFORMATION
  Report Type: Spontaneous
  Country: FR (occurrence: FR)
  Receive Date: 20180307
  Receipt Date: 20180725
  Transmission Date: 20181010
  Serious: Yes (Hospitalization, Other)
  Sender: FDA-Public Use
  Company Number: FR-UCBSA-8054449

PATIENT
  Age: 71 Year
  Sex: Female

DRUGS (13)
  1. ABILIFY [Suspect]
     Active Substance: ARIPIPRAZOLE
     Dosage: 30 MG, ONCE DAILY (QD)
     Route: 048
  2. AMLOR [Suspect]
     Active Substance: AMLODIPINE BESYLATE
     Dosage: 5 MG, UNK
     Route: 048
  3. AMLOR [Suspect]
     Active Substance: AMLODIPINE BESYLATE
     Indication: HYPERTENSION
  4. ABILIFY [Suspect]
     Active Substance: ARIPIPRAZOLE
     Indication: SCHIZOPHRENIA
     Dosage: 30 MG, ONCE DAILY (QD)
     Route: 048
  5. TEGRETOL [Suspect]
     Active Substance: CARBAMAZEPINE
     Indication: SCHIZOPHRENIA
     Dosage: 200 MG, ONCE DAILY (QD)
     Route: 048
  6. KEPPRA [Suspect]
     Active Substance: LEVETIRACETAM
     Indication: SCHIZOPHRENIA
  7. ABILIFY [Suspect]
     Active Substance: ARIPIPRAZOLE
     Indication: SCHIZOPHRENIA
     Dosage: 40 MG, ONCE DAILY (QD)
     Route: 048
     Dates: start: 200907
  8. KEPPRA [Suspect]
     Active Substance: LEVETIRACETAM
     Indication: EPILEPSY
     Dosage: 500 MG, ONCE DAILY (QD)
     Route: 048
  9. KEPPRA [Suspect]
     Active Substance: LEVETIRACETAM
     Indication: SCHIZOPHRENIA
  10. ABILIFY [Suspect]
     Active Substance: ARIPIPRAZOLE
     Indication: EPILEPSY
  11. CARBAMAZEPINE. [Suspect]
     Active Substance: CARBAMAZEPINE
     Indication: EPILEPSY
     Dosage: 200 MG, ONCE DAILY (QD)
     Route: 048
  12. CARBAMAZEPINE. [Suspect]
     Active Substance: CARBAMAZEPINE
     Indication: SCHIZOPHRENIA
     Dosage: 400 MG DAILY
     Route: 048
  13. TEGRETOL [Suspect]
     Active Substance: CARBAMAZEPINE
     Indication: EPILEPSY
     Dosage: 400 MG
     Route: 048

REACTIONS (8)
  - Neuroleptic malignant syndrome [Unknown]
  - Blood creatine phosphokinase increased [Not Recovered/Not Resolved]
  - Myalgia [Recovered/Resolved]
  - Myoglobin blood increased [Not Recovered/Not Resolved]
  - Hypotension [Recovered/Resolved]
  - Musculoskeletal stiffness [Recovered/Resolved]
  - Haematoma [Recovered/Resolved]
  - Restlessness [Unknown]

NARRATIVE: CASE EVENT DATE: 20090930
